FAERS Safety Report 5057950-5 (Version None)
Quarter: 2006Q3

REPORT INFORMATION
  Report Type: 
  Country: None (occurrence: None)
  Receive Date: 20060721
  Receipt Date: 20060417
  Transmission Date: 20061208
  Serious: No
  Sender: FDA-Public Use
  Company Number: US-GLAXOSMITHKLINE-A0601950A

PATIENT
  Age: 47 Year
  Sex: Female

DRUGS (10)
  1. AVANDIA [Suspect]
     Dosage: 2MG TWICE PER DAY
     Route: 048
     Dates: start: 20060317
  2. METFORMIN [Suspect]
     Dosage: 500MG TWICE PER DAY
     Route: 048
     Dates: start: 20060317
  3. TOPROL-XL [Concomitant]
  4. TIZANIDINE HCL [Concomitant]
  5. TOPAMAX [Concomitant]
  6. KLONOPIN [Concomitant]
  7. CYMBALTA [Concomitant]
  8. UNKNOWN MEDICATION [Concomitant]
  9. ASPIRIN [Concomitant]
  10. DOXAZOSIN MESYLATE [Concomitant]

REACTIONS (2)
  - BLOOD GLUCOSE INCREASED [None]
  - DRUG INEFFECTIVE [None]
